FAERS Safety Report 18575019 (Version 3)
Quarter: 2020Q4

REPORT INFORMATION
  Report Type: Spontaneous
  Country: US (occurrence: US)
  Receive Date: 20201203
  Receipt Date: 20201207
  Transmission Date: 20210114
  Serious: Yes (Hospitalization)
  Sender: FDA-Public Use
  Company Number: US-CELGENEUS-USA-20201107042

PATIENT
  Age: 59 Year
  Sex: Female
  Weight: 63.3 kg

DRUGS (52)
  1. CEFEPIME [Concomitant]
     Active Substance: CEFEPIME HYDROCHLORIDE
     Indication: PYREXIA
     Route: 065
     Dates: start: 20191012
  2. LEVAQUIN [Concomitant]
     Active Substance: LEVOFLOXACIN
     Indication: PYREXIA
     Route: 065
     Dates: start: 20191013
  3. MEROPENEM. [Concomitant]
     Active Substance: MEROPENEM
     Indication: PYREXIA
     Route: 065
     Dates: start: 20191015
  4. ALBUMIN HUMAN 2 [Concomitant]
     Indication: LOCALISED OEDEMA
     Route: 065
     Dates: start: 20191023
  5. CLADRIBINE. [Concomitant]
     Active Substance: CLADRIBINE
     Indication: ACUTE MYELOID LEUKAEMIA
     Route: 065
     Dates: start: 20191024
  6. CLADRIBINE. [Concomitant]
     Active Substance: CLADRIBINE
     Route: 065
     Dates: start: 20191025
  7. CLADRIBINE. [Concomitant]
     Active Substance: CLADRIBINE
     Route: 065
     Dates: start: 20191026
  8. AFRIN [Concomitant]
     Active Substance: OXYMETAZOLINE
     Indication: RESPIRATORY TRACT INFECTION
     Route: 065
     Dates: start: 20191028
  9. VITAMIN B12 [Concomitant]
     Active Substance: CYANOCOBALAMIN
     Indication: PRODUCT USED FOR UNKNOWN INDICATION
     Dosage: 2500 MICROGRAM
     Route: 060
  10. TIGECYCLINE. [Concomitant]
     Active Substance: TIGECYCLINE
     Indication: PYREXIA
     Route: 065
     Dates: start: 20191025
  11. NOXAFIL [Concomitant]
     Active Substance: POSACONAZOLE
     Indication: PRODUCT USED FOR UNKNOWN INDICATION
     Dosage: 300 MILLIGRAM
     Route: 048
     Dates: start: 20191018
  12. POMALYST [Suspect]
     Active Substance: POMALIDOMIDE
     Route: 048
     Dates: start: 20190625, end: 201910
  13. POMALYST [Suspect]
     Active Substance: POMALIDOMIDE
     Dosage: 3 MILLIGRAM
     Route: 048
     Dates: start: 20191118, end: 20191127
  14. THALOMID [Suspect]
     Active Substance: THALIDOMIDE
     Indication: PLASMA CELL MYELOMA
     Route: 048
     Dates: start: 2016, end: 2018
  15. CLINDAMYCIN. [Concomitant]
     Active Substance: CLINDAMYCIN
     Indication: PYREXIA
     Route: 065
     Dates: start: 20191015
  16. MIDAZOLAM. [Concomitant]
     Active Substance: MIDAZOLAM
     Route: 065
     Dates: start: 20191018
  17. NITAZOXANIDE [Concomitant]
     Active Substance: NITAZOXANIDE
     Indication: COLITIS
     Route: 065
     Dates: start: 20191016
  18. CYPROHEPTADINE. [Concomitant]
     Active Substance: CYPROHEPTADINE
     Indication: DECREASED APPETITE
     Route: 065
     Dates: start: 20191025
  19. FUROSEMIDE. [Concomitant]
     Active Substance: FUROSEMIDE
     Indication: LOCALISED OEDEMA
     Route: 065
     Dates: start: 20191018
  20. CLADRIBINE. [Concomitant]
     Active Substance: CLADRIBINE
     Route: 065
     Dates: start: 20191027
  21. AMIKACIN. [Concomitant]
     Active Substance: AMIKACIN
     Indication: SPLEEN DISORDER
     Route: 065
     Dates: start: 20191026
  22. ATROVENT [Concomitant]
     Active Substance: IPRATROPIUM BROMIDE
     Indication: RESPIRATORY TRACT INFECTION
     Route: 065
     Dates: start: 20191026
  23. VASOPRESSIN. [Concomitant]
     Active Substance: VASOPRESSIN
     Indication: RESPIRATORY TRACT INFECTION
     Route: 065
     Dates: start: 20191029
  24. DIFLUCAN [Concomitant]
     Active Substance: FLUCONAZOLE
     Indication: PRODUCT USED FOR UNKNOWN INDICATION
     Dosage: 200 MILLIGRAM
     Route: 048
  25. ZOFRAN [Concomitant]
     Active Substance: ONDANSETRON HYDROCHLORIDE
     Indication: NAUSEA
     Dosage: 24 MILLIGRAM
     Route: 048
     Dates: end: 20200730
  26. ULTRAM [Concomitant]
     Active Substance: TRAMADOL HYDROCHLORIDE
     Indication: PAIN
     Dosage: 200 MILLIGRAM
     Route: 048
  27. LINEZOLID. [Concomitant]
     Active Substance: LINEZOLID
     Indication: PYREXIA
     Route: 065
     Dates: start: 20191012
  28. DAPTOMYCIN. [Concomitant]
     Active Substance: DAPTOMYCIN
     Indication: PYREXIA
     Route: 065
     Dates: start: 20191014
  29. PRIMAQUINE [Concomitant]
     Active Substance: PRIMAQUINE PHOSPHATE
     Indication: PYREXIA
     Route: 065
     Dates: start: 20191016
  30. CLADRIBINE. [Concomitant]
     Active Substance: CLADRIBINE
     Route: 065
     Dates: start: 20191028
  31. VENETOCLAX. [Concomitant]
     Active Substance: VENETOCLAX
     Indication: ACUTE MYELOID LEUKAEMIA
     Route: 065
     Dates: start: 20191024
  32. OXYCODONE [Concomitant]
     Active Substance: OXYCODONE
     Indication: SPLEEN DISORDER
     Route: 065
     Dates: start: 20191014
  33. FILGRASTIM-AAFI [Concomitant]
     Active Substance: FILGRASTIM-AAFI
     Indication: PRODUCT USED FOR UNKNOWN INDICATION
     Dosage: 300 MCG/0.5 ML (ANC{1)
     Route: 065
  34. LETERMOVIR [Concomitant]
     Active Substance: LETERMOVIR
     Indication: PRODUCT USED FOR UNKNOWN INDICATION
     Dosage: 480 MILLIGRAM
     Route: 048
  35. PYRIDOXINE [Concomitant]
     Active Substance: PYRIDOXINE
     Indication: PRODUCT USED FOR UNKNOWN INDICATION
     Dosage: 25 MILLIGRAM
     Route: 048
  36. POMALYST [Suspect]
     Active Substance: POMALIDOMIDE
     Route: 048
     Dates: start: 20190625, end: 201910
  37. REVLIMID [Suspect]
     Active Substance: LENALIDOMIDE
     Indication: PLASMA CELL MYELOMA
     Route: 048
     Dates: start: 2016, end: 2018
  38. MIDAZOLAM. [Concomitant]
     Active Substance: MIDAZOLAM
     Indication: PYREXIA
     Route: 065
     Dates: start: 20191015
  39. WHEY PROTEIN [Concomitant]
     Active Substance: WHEY
     Indication: DECREASED APPETITE
     Route: 065
     Dates: start: 20191018
  40. METHYLPREDNISOLONE SODIUM SUCCINATE. [Concomitant]
     Active Substance: METHYLPREDNISOLONE SODIUM SUCCINATE
     Indication: RESPIRATORY TRACT INFECTION
     Route: 065
     Dates: start: 20191027
  41. ZOFRAN [Concomitant]
     Active Substance: ONDANSETRON HYDROCHLORIDE
     Indication: VOMITING
  42. VALTREX [Concomitant]
     Active Substance: VALACYCLOVIR HYDROCHLORIDE
     Indication: PRODUCT USED FOR UNKNOWN INDICATION
     Dosage: 500 MILLIGRAM
     Route: 048
  43. LEVAQUIN [Concomitant]
     Active Substance: LEVOFLOXACIN
     Indication: PRODUCT USED FOR UNKNOWN INDICATION
     Dosage: 500 MILLIGRAM
     Route: 048
  44. VITAMIN B6 [Concomitant]
     Active Substance: PYRIDOXINE HYDROCHLORIDE
     Indication: SUPPLEMENTATION THERAPY
     Route: 065
     Dates: start: 20191013
  45. CYTARABINE. [Concomitant]
     Active Substance: CYTARABINE
     Indication: ACUTE MYELOID LEUKAEMIA
     Route: 065
     Dates: start: 20191024
  46. SENOKOT-S [Concomitant]
     Active Substance: DOCUSATE SODIUM\SENNOSIDES
     Indication: CONSTIPATION
     Dosage: 50 MILLIGRAM
     Route: 048
     Dates: end: 20200730
  47. POMALYST [Suspect]
     Active Substance: POMALIDOMIDE
     Indication: PLASMA CELL MYELOMA
     Route: 048
     Dates: start: 201607, end: 201808
  48. CALAMINE-MENTHOLZINC OXIDE [Concomitant]
     Indication: RASH
     Route: 065
     Dates: start: 20191016
  49. AMIKACIN. [Concomitant]
     Active Substance: AMIKACIN
     Route: 065
     Dates: start: 20191027
  50. CASPOFUNGIN [Concomitant]
     Active Substance: CASPOFUNGIN
     Indication: RESPIRATORY TRACT INFECTION
     Route: 065
     Dates: start: 20191026
  51. IPRATROPIUM-ALBUTEROL [Concomitant]
     Active Substance: ALBUTEROL\IPRATROPIUM
     Indication: RESPIRATORY TRACT INFECTION
     Route: 065
     Dates: start: 20191027
  52. FOLIC ACID. [Concomitant]
     Active Substance: FOLIC ACID
     Indication: PRODUCT USED FOR UNKNOWN INDICATION
     Dosage: 400 MICROGRAM
     Route: 048

REACTIONS (1)
  - Acute myeloid leukaemia [Not Recovered/Not Resolved]

NARRATIVE: CASE EVENT DATE: 20201012
